FAERS Safety Report 12900510 (Version 2)
Quarter: 2016Q4

REPORT INFORMATION
  Report Type: Spontaneous
  Country: HU (occurrence: HU)
  Receive Date: 20161101
  Receipt Date: 20161203
  Transmission Date: 20170207
  Serious: Yes (Death, Hospitalization, Other)
  Sender: FDA-Public Use
  Company Number: HU-ALEXION PHARMACEUTICALS INC.-A201608223

PATIENT
  Age: 15 Day
  Sex: Male
  Weight: 2.9 kg

DRUGS (5)
  1. BERIPLEX HS [Concomitant]
     Active Substance: COAGULATION FACTOR IX HUMAN\COAGULATION FACTOR VII HUMAN\COAGULATION FACTOR X HUMAN\PROTEIN C\PROTEIN S HUMAN\PROTHROMBIN
     Indication: HAEMOLYTIC URAEMIC SYNDROME
     Dosage: 100E/DOS
     Route: 042
     Dates: start: 20160920, end: 20160929
  2. ATENATIV [Concomitant]
     Active Substance: ANTITHROMBIN III HUMAN
     Indication: HAEMOLYTIC URAEMIC SYNDROME
     Dosage: 450 NE/DOS
     Route: 042
     Dates: start: 20160920, end: 20160929
  3. PENIBIOT [Concomitant]
     Indication: MENINGOCOCCAL INFECTION
     Dosage: 3X250000E
     Route: 042
     Dates: start: 20160921, end: 20160928
  4. HAEMOCOMPLETTAN P [Concomitant]
     Active Substance: FIBRINOGEN HUMAN
     Indication: HAEMOLYTIC URAEMIC SYNDROME
     Dosage: 200 MG, UNK
     Route: 042
     Dates: start: 20160920, end: 20161003
  5. SOLIRIS [Suspect]
     Active Substance: ECULIZUMAB
     Indication: HAEMOLYTIC URAEMIC SYNDROME
     Dosage: 300 MG, UNK
     Route: 042
     Dates: start: 20160921, end: 20160928

REACTIONS (4)
  - Condition aggravated [Fatal]
  - Drug resistance [Fatal]
  - Haemolytic uraemic syndrome [Fatal]
  - Multiple organ dysfunction syndrome [Fatal]

NARRATIVE: CASE EVENT DATE: 20160928
